FAERS Safety Report 8269630-3 (Version None)
Quarter: 2012Q2

REPORT INFORMATION
  Report Type: 
  Country: None (occurrence: None)
  Receive Date: 20120410
  Receipt Date: 20120402
  Transmission Date: 20120825
  Serious: Yes (Hospitalization)
  Sender: FDA-Public Use
  Company Number: US-BIOGENIDEC-2012BI011819

PATIENT
  Age: 39 Year
  Sex: Female

DRUGS (6)
  1. TYSABRI [Suspect]
     Indication: MULTIPLE SCLEROSIS
     Route: 042
     Dates: start: 20090821
  2. CELEXA [Concomitant]
  3. BACLOFEN [Concomitant]
     Indication: TRIGEMINAL NEURALGIA
  4. XANAX [Concomitant]
  5. VICODIN [Concomitant]
     Indication: TRIGEMINAL NEURALGIA
  6. TRAMADOL HCL [Concomitant]

REACTIONS (1)
  - RAYNAUD'S PHENOMENON [None]
